FAERS Safety Report 6568491-8 (Version None)
Quarter: 2010Q1

REPORT INFORMATION
  Report Type: 
  Country: None (occurrence: None)
  Receive Date: 20100128
  Receipt Date: 20100116
  Transmission Date: 20100710
  Serious: Yes (Other)
  Sender: FDA-Public Use
  Company Number: 2010AP000117

PATIENT
  Age: 8 Year
  Sex: Female

DRUGS (2)
  1. FLUTICASONE PROPIONATE [Suspect]
     Indication: ASTHMA
     Dosage: INH
  2. ALBUTEROL SULFATE [Suspect]
     Indication: ASTHMA
     Dosage: INH

REACTIONS (5)
  - BRONCHOSPASM PARADOXICAL [None]
  - PERIORBITAL OEDEMA [None]
  - PRURITUS [None]
  - URTICARIA [None]
  - WHEEZING [None]
